FAERS Safety Report 6206115-X (Version None)
Quarter: 2009Q2

REPORT INFORMATION
  Report Type: 
  Country: None (occurrence: None)
  Receive Date: 20090528
  Receipt Date: 20090225
  Transmission Date: 20091009
  Serious: No
  Sender: FDA-Public Use
  Company Number: US-KINGPHARMUSA00001-K200900200

PATIENT
  Sex: Female

DRUGS (6)
  1. AVINZA [Suspect]
     Dosage: 30 MG, QD
     Route: 048
     Dates: start: 20081203
  2. AMBIEN [Concomitant]
     Dosage: 10 MG, UNK
     Route: 048
  3. TRAZODONE HCL [Concomitant]
     Dosage: 50 MG, UNK
     Route: 048
  4. CYMBALTA [Concomitant]
     Dosage: 60 MG, QD
     Route: 048
  5. TRICOR [Concomitant]
     Dosage: 145 MG, QD
     Route: 048
  6. LEVOTHYROXINE SODIUM [Concomitant]
     Dosage: 25 MCG, UNK
     Route: 048

REACTIONS (2)
  - DRUG DIVERSION [None]
  - DRUG INEFFECTIVE [None]
